FAERS Safety Report 4692764-7 (Version None)
Quarter: 2005Q2

REPORT INFORMATION
  Report Type: 
  Country: None (occurrence: None)
  Receive Date: 20050617
  Receipt Date: 20050608
  Transmission Date: 20051028
  Serious: Yes (Other)
  Sender: FDA-Public Use
  Company Number: PHEH2005US06522

PATIENT
  Sex: Male

DRUGS (1)
  1. LOTENSIN [Suspect]
     Route: 064

REACTIONS (2)
  - DEVELOPMENTAL DELAY [None]
  - RENAL DISORDER [None]
